FAERS Safety Report 13304784 (Version 2)
Quarter: 2017Q3

REPORT INFORMATION
  Report Type: Spontaneous
  Country: US (occurrence: US)
  Receive Date: 20170308
  Receipt Date: 20170704
  Transmission Date: 20171127
  Serious: No
  Sender: FDA-Public Use
  Company Number: US-CELGENEUS-USA-2017028971

PATIENT
  Age: 62 Year
  Sex: Female

DRUGS (1)
  1. OTEZLA [Suspect]
     Active Substance: APREMILAST
     Indication: PSORIASIS
     Dosage: 60 MILLIGRAM
     Route: 048
     Dates: start: 20170216

REACTIONS (5)
  - Nausea [Recovered/Resolved]
  - Headache [Unknown]
  - General physical health deterioration [Unknown]
  - Nasal congestion [Unknown]
  - Vomiting [Unknown]

NARRATIVE: CASE EVENT DATE: 2017
